FAERS Safety Report 6234131-0 (Version None)
Quarter: 2009Q2

REPORT INFORMATION
  Report Type: 
  Country: None (occurrence: None)
  Receive Date: 20090618
  Receipt Date: 20090608
  Transmission Date: 20091009
  Serious: Yes (Hospitalization, Disabling)
  Sender: FDA-Public Use
  Company Number: DK-CELGENEUS-044-50794-09020322

PATIENT
  Sex: Female
  Weight: 90 kg

DRUGS (6)
  1. VIDAZA [Suspect]
     Route: 058
     Dates: start: 20080825, end: 20090116
  2. VIDAZA [Suspect]
     Route: 058
     Dates: start: 20090330
  3. FURIX [Concomitant]
     Route: 048
  4. KALEORID [Concomitant]
     Route: 048
  5. MAGNESIUM SULFATE [Concomitant]
     Indication: CONSTIPATION
     Route: 048
  6. ZOFRAN [Concomitant]
     Indication: DRUG USE FOR UNKNOWN INDICATION
     Route: 065

REACTIONS (2)
  - CARPAL TUNNEL SYNDROME [None]
  - NEUROPATHY PERIPHERAL [None]
